FAERS Safety Report 7512436-0 (Version None)
Quarter: 2011Q2

REPORT INFORMATION
  Report Type: 
  Country: None (occurrence: None)
  Receive Date: 20110531
  Receipt Date: 20110530
  Transmission Date: 20111010
  Serious: Yes (Life-Threatening)
  Sender: FDA-Public Use
  Company Number: IT-ROCHE-765444

PATIENT
  Sex: Male

DRUGS (3)
  1. CARBOPLATIN [Concomitant]
     Route: 042
     Dates: start: 20100825, end: 20101027
  2. TAXOL [Concomitant]
     Route: 042
     Dates: start: 20100825, end: 20101027
  3. AVASTIN [Suspect]
     Dosage: FREQUENCY: CYCLIC
     Route: 042
     Dates: start: 20100825, end: 20100927

REACTIONS (2)
  - HYPERTENSIVE HEART DISEASE [None]
  - HYPERTENSION [None]
